FAERS Safety Report 21611843 (Version 1)
Quarter: 2022Q4

REPORT INFORMATION
  Report Type: Spontaneous
  Country: US (occurrence: US)
  Receive Date: 20221117
  Receipt Date: 20221117
  Transmission Date: 20230113
  Serious: No
  Sender: FDA-Public Use
  Company Number: US-PURDUE PHARMA-USA-2022-0295156

PATIENT
  Sex: Male

DRUGS (3)
  1. MORPHINE SULFATE [Suspect]
     Active Substance: MORPHINE SULFATE
     Indication: Neuropathy peripheral
     Dosage: UNK
     Route: 065
  2. BUPRENORPHINE [Suspect]
     Active Substance: BUPRENORPHINE
     Indication: Neuropathy peripheral
     Dosage: 20 MCG
     Route: 062
  3. ACETAMINOPHEN\OXYCODONE HYDROCHLORIDE\OXYCODONE TEREPHTHALATE [Suspect]
     Active Substance: ACETAMINOPHEN\OXYCODONE HYDROCHLORIDE\OXYCODONE TEREPHTHALATE
     Indication: Neuropathy peripheral
     Dosage: UNK
     Route: 065

REACTIONS (2)
  - Drug ineffective [Unknown]
  - Therapeutic product effect incomplete [Unknown]
